FAERS Safety Report 23415868 (Version 1)
Quarter: 2024Q1

REPORT INFORMATION
  Report Type: Spontaneous
  Country: US (occurrence: US)
  Receive Date: 20240118
  Receipt Date: 20240118
  Transmission Date: 20240410
  Serious: Yes (Hospitalization)
  Sender: FDA-Public Use
  Company Number: US-BAYER-2024A006368

PATIENT
  Age: 31 Year
  Sex: Male

DRUGS (1)
  1. BAYER ASPIRIN EXTRA STRENGTH CAPLETS [Suspect]
     Active Substance: ASPIRIN
     Indication: Migraine
     Dosage: 500 MG
     Dates: end: 20240108

REACTIONS (2)
  - Hepatic failure [Not Recovered/Not Resolved]
  - Product use in unapproved indication [None]
